FAERS Safety Report 4990223-5 (Version None)
Quarter: 2006Q2

REPORT INFORMATION
  Report Type: 
  Country: None (occurrence: None)
  Receive Date: 20060503
  Receipt Date: 20060410
  Transmission Date: 20061013
  Serious: Yes (Hospitalization, Disabling)
  Sender: FDA-Public Use
  Company Number: US-MERCK-0604USA01834

PATIENT
  Age: 55 Year
  Sex: Female
  Weight: 91 kg

DRUGS (2)
  1. VIOXX [Suspect]
     Indication: ARTHRITIS
     Route: 065
     Dates: end: 20041001
  2. TYLENOL (CAPLET) [Concomitant]
     Indication: ARTHRITIS
     Route: 065

REACTIONS (6)
  - CARDIAC FAILURE CONGESTIVE [None]
  - CLOSTRIDIUM COLITIS [None]
  - CORONARY ARTERY DISEASE [None]
  - DEPRESSION [None]
  - MYOCARDIAL INFARCTION [None]
  - NASOPHARYNGITIS [None]
